FAERS Safety Report 12167596 (Version 4)
Quarter: 2016Q3

REPORT INFORMATION
  Report Type: Spontaneous
  Country: US (occurrence: US)
  Receive Date: 20160310
  Receipt Date: 20160902
  Transmission Date: 20161109
  Serious: Yes (Other)
  Sender: FDA-Public Use
  Company Number: PHEH2016US005133

PATIENT
  Age: 47 Year
  Sex: Female
  Weight: 82 kg

DRUGS (9)
  1. AROMASIN [Suspect]
     Active Substance: EXEMESTANE
     Dosage: 25 MG, QD(ONE EVERYDAY)
     Route: 048
     Dates: start: 201512
  2. TAMOXIFEN [Suspect]
     Active Substance: TAMOXIFEN
     Indication: BREAST CANCER
     Dosage: UNK
     Route: 065
     Dates: start: 2002, end: 2012
  3. FEMARA [Suspect]
     Active Substance: LETROZOLE
     Indication: BREAST CANCER
     Dosage: UNK
     Route: 048
     Dates: start: 20120525, end: 20120720
  4. TAMOXIFEN [Suspect]
     Active Substance: TAMOXIFEN
     Dosage: UNK
     Route: 065
  5. AROMASIN [Suspect]
     Active Substance: EXEMESTANE
     Indication: BREAST CANCER
     Dosage: UNK
     Route: 048
     Dates: start: 20121016, end: 20130215
  6. KAPSOVIT [Concomitant]
     Indication: PRODUCT USED FOR UNKNOWN INDICATION
     Route: 065
  7. LUPRON [Suspect]
     Active Substance: LEUPROLIDE ACETATE
     Indication: BREAST CANCER
  8. ARIMIDEX [Suspect]
     Active Substance: ANASTROZOLE
     Indication: PRODUCT USED FOR UNKNOWN INDICATION
     Dosage: UNK
     Route: 065
     Dates: start: 2013, end: 201601
  9. LUPRON [Suspect]
     Active Substance: LEUPROLIDE ACETATE
     Indication: MENOPAUSE
     Dosage: QMO(ONCE A MONTH)
     Route: 065
     Dates: start: 2013, end: 201601

REACTIONS (8)
  - Dysstasia [Unknown]
  - Dyspnoea [Unknown]
  - Blood triglycerides increased [Unknown]
  - Arthralgia [Unknown]
  - Breast cancer recurrent [Unknown]
  - Pain in extremity [Unknown]
  - Myalgia [Unknown]
  - Bone pain [Unknown]

NARRATIVE: CASE EVENT DATE: 20151107
